FAERS Safety Report 8310730-7 (Version None)
Quarter: 2012Q2

REPORT INFORMATION
  Report Type: 
  Country: None (occurrence: None)
  Receive Date: 20120425
  Receipt Date: 20120418
  Transmission Date: 20120825
  Serious: Yes (Other)
  Sender: FDA-Public Use
  Company Number: US-BAYER-2012-038032

PATIENT
  Age: 31 Year
  Sex: Female

DRUGS (2)
  1. IBUPROFEN [Concomitant]
     Dosage: 400 MG, UNK
     Route: 048
     Dates: start: 20120401
  2. ASPIRIN [Suspect]
     Indication: TOOTHACHE
     Dosage: 1 TABLET EVERY 8 HOURS
     Route: 048
     Dates: start: 20120416, end: 20120417

REACTIONS (3)
  - DIZZINESS [None]
  - VAGINAL HAEMORRHAGE [None]
  - ABDOMINAL DISCOMFORT [None]
